FAERS Safety Report 17998847 (Version 1)
Quarter: 2020Q3

REPORT INFORMATION
  Report Type: Spontaneous
  Country: US (occurrence: US)
  Receive Date: 20200708
  Receipt Date: 20200708
  Transmission Date: 20201103
  Serious: Yes (Other)
  Sender: FDA-Public Use
  Company Number: None

PATIENT
  Age: 57 Year
  Sex: Female
  Weight: 59.85 kg

DRUGS (3)
  1. ESTRING [Concomitant]
     Active Substance: ESTRADIOL
     Dates: start: 20130101, end: 20130303
  2. ESTRADIOL TRANSDERMAL SYSTEM [Suspect]
     Active Substance: ESTRADIOL
     Indication: HORMONE REPLACEMENT THERAPY
     Dates: start: 20081205
  3. MINIVELLE [Concomitant]
     Active Substance: ESTRADIOL
     Dates: start: 20130312, end: 20130313

REACTIONS (2)
  - Blood pressure abnormal [None]
  - Migraine [None]

NARRATIVE: CASE EVENT DATE: 20100201
